FAERS Safety Report 7564050-9 (Version None)
Quarter: 2011Q2

REPORT INFORMATION
  Report Type: 
  Country: None (occurrence: None)
  Receive Date: 20110622
  Receipt Date: 20110614
  Transmission Date: 20111010
  Serious: Yes (Other)
  Sender: FDA-Public Use
  Company Number: US-ASTRAZENECA-2011SE05379

PATIENT
  Age: 39 Year
  Sex: Female

DRUGS (3)
  1. NEXIUM [Suspect]
     Route: 048
  2. NEXIUM [Suspect]
     Route: 048
  3. NEXIUM [Suspect]
     Dosage: 1 PER DAY
     Route: 048

REACTIONS (4)
  - THROAT IRRITATION [None]
  - ENDOSCOPY UPPER GASTROINTESTINAL TRACT [None]
  - GASTROOESOPHAGEAL REFLUX DISEASE [None]
  - TONGUE DISORDER [None]
